FAERS Safety Report 9513329 (Version 1)
Quarter: 2013Q1

REPORT INFORMATION
  Report Type: Spontaneous
  Country: US (occurrence: None)
  Receive Date: 20130305
  Receipt Date: 20130305
  Transmission Date: 20140127
  Serious: Yes (Hospitalization)
  Sender: FDA-Public Use
  Company Number: 163-21880-12042429

PATIENT
  Age: 70 Year
  Sex: Female
  Weight: 124.74 kg

DRUGS (16)
  1. REVLIMID (LENALIDOMIDE) (15 MILLIGRAM, CAPSULES) [Suspect]
     Indication: PLASMA CELL MYELOMA
     Route: 048
     Dates: start: 20111113
  2. AMBIEN (ZOLPIDEM TARTRATE) [Concomitant]
  3. ASA (ACETYLSALICYLIC ACID) [Concomitant]
  4. CALCIUM (CALCIUM) [Concomitant]
  5. COREG (CARVEDILOL) [Concomitant]
  6. FISH OIL (FISH OIL) [Concomitant]
  7. FLOMAX [Concomitant]
  8. FLONASE (FLUTICASONE PROPIONATE) [Concomitant]
  9. FOLIC ACID (FOLIC ACID) [Concomitant]
  10. HEPARIN (HEPARIN) [Concomitant]
  11. LANTUS (INSULIN GLARGINE) [Concomitant]
  12. LASIX (FUROSEMIDE) [Concomitant]
  13. METAMUCIL (PSYLLIUM) [Concomitant]
  14. VITAMINS [Concomitant]
  15. NEURONTIN (GABAPENTIN) [Concomitant]
  16. PRAVACHOL (PRAVASTATIN SODIUM) [Concomitant]

REACTIONS (1)
  - Clostridium difficile infection [None]
